FAERS Safety Report 16284913 (Version 1)
Quarter: 2019Q2

REPORT INFORMATION
  Report Type: Spontaneous
  Country: US (occurrence: US)
  Receive Date: 20190508
  Receipt Date: 20190508
  Transmission Date: 20190711
  Serious: No
  Sender: FDA-Public Use
  Company Number: US-009507513-1904USA000026

PATIENT
  Age: 14 Year
  Sex: Male

DRUGS (3)
  1. SINGULAIR [Suspect]
     Active Substance: MONTELUKAST SODIUM
     Indication: SEASONAL ALLERGY
     Dosage: 5MG, ONE TABLET ONCE PER DAY
     Route: 048
     Dates: start: 201703
  2. CLARITIN [Concomitant]
     Active Substance: LORATADINE
  3. SINGULAIR [Suspect]
     Active Substance: MONTELUKAST SODIUM
     Indication: SEASONAL ALLERGY
     Dosage: 10 MG, ONE TABLET ONCE PER DAY
     Route: 048
     Dates: start: 20190321, end: 20190328

REACTIONS (7)
  - Drug ineffective [Not Recovered/Not Resolved]
  - Dizziness [Not Recovered/Not Resolved]
  - Headache [Not Recovered/Not Resolved]
  - Product administered to patient of inappropriate age [Unknown]
  - Sneezing [Unknown]
  - Disorientation [Not Recovered/Not Resolved]
  - Product prescribing error [Unknown]

NARRATIVE: CASE EVENT DATE: 201903
